FAERS Safety Report 24217693 (Version 1)
Quarter: 2024Q3

REPORT INFORMATION
  Report Type: Spontaneous
  Country: US (occurrence: None)
  Receive Date: 20240815
  Receipt Date: 20240815
  Transmission Date: 20241016
  Serious: Yes (Other)
  Sender: Public
  Company Number: None

PATIENT
  Age: 69 Year
  Sex: Female
  Weight: 60.75 kg

DRUGS (1)
  1. PRIVIGEN [Suspect]
     Active Substance: HUMAN IMMUNOGLOBULIN G
     Indication: Myositis
     Dosage: OTHER FREQUENCY : 40GM/DAY X 3 DAYS;?
     Route: 041
     Dates: start: 20240813, end: 20240815

REACTIONS (5)
  - Pyrexia [None]
  - Productive cough [None]
  - Night sweats [None]
  - Feeling cold [None]
  - Blood pressure decreased [None]

NARRATIVE: CASE EVENT DATE: 20240815
